FAERS Safety Report 12092513 (Version 8)
Quarter: 2016Q4

REPORT INFORMATION
  Report Type: Spontaneous
  Country: US (occurrence: US)
  Receive Date: 20160219
  Receipt Date: 20161101
  Transmission Date: 20170206
  Serious: Yes (Death, Hospitalization, Other)
  Sender: FDA-Public Use
  Company Number: US-TEVA-636167USA

PATIENT
  Age: 48 Year
  Sex: Male

DRUGS (11)
  1. COPAXONE [Suspect]
     Active Substance: GLATIRAMER ACETATE
     Dosage: UNKNOWN FORM OF STRENGTH
     Route: 058
     Dates: start: 201509
  2. PRILOSEC [Concomitant]
     Active Substance: OMEPRAZOLE MAGNESIUM
  3. NEURONTIN [Concomitant]
     Active Substance: GABAPENTIN
  4. TYLENOL WITH CODEINE [Concomitant]
     Active Substance: ACETAMINOPHEN\CODEINE PHOSPHATE
  5. HYDRODIURIL [Concomitant]
     Active Substance: HYDROCHLOROTHIAZIDE
  6. WELLBUTRIN [Concomitant]
     Active Substance: BUPROPION HYDROCHLORIDE
  7. LIPITOR [Concomitant]
     Active Substance: ATORVASTATIN CALCIUM
  8. LEXAPRO [Concomitant]
     Active Substance: ESCITALOPRAM OXALATE
  9. TENORMIN [Concomitant]
     Active Substance: ATENOLOL
  10. STRIBILD [Concomitant]
     Active Substance: COBICISTAT\ELVITEGRAVIR\EMTRICITABINE\TENOFOVIR DISOPROXIL FUMARATE
  11. PRINIVIL [Concomitant]
     Active Substance: LISINOPRIL

REACTIONS (18)
  - Death [Fatal]
  - Disturbance in attention [Unknown]
  - Hospitalisation [Unknown]
  - Progressive multifocal leukoencephalopathy [Unknown]
  - Fall [Unknown]
  - Abnormal behaviour [Unknown]
  - Motor dysfunction [Unknown]
  - Headache [Unknown]
  - Dysarthria [Unknown]
  - Seizure [Recovered/Resolved]
  - Crying [Unknown]
  - Repetitive speech [Unknown]
  - Syncope [Recovered/Resolved]
  - Balance disorder [Unknown]
  - Confusional state [Unknown]
  - Memory impairment [Unknown]
  - Diplopia [Unknown]
  - Product use issue [Unknown]

NARRATIVE: CASE EVENT DATE: 201510
